FAERS Safety Report 6920803-9 (Version None)
Quarter: 2010Q3

REPORT INFORMATION
  Report Type: 
  Country: None (occurrence: None)
  Receive Date: 20100804
  Receipt Date: 20091015
  Transmission Date: 20110219
  Serious: No
  Sender: FDA-Public Use
  Company Number: 2009-4290

PATIENT
  Age: 66 Year
  Sex: Female
  Weight: 94.8 kg

DRUGS (8)
  1. SOMATULINE DEPOT [Suspect]
     Indication: ACROMEGALY
     Dosage: (120 MG, 1 IN 1 M), SUBCUTANEOUS
     Route: 058
     Dates: start: 20090309
  2. ACTOPLUS MET (DRUG USED IN DIABETES) [Concomitant]
  3. CYMBALTA [Concomitant]
  4. HYZAAR [Concomitant]
  5. PRAVACHOL [Concomitant]
  6. SYNTHROID [Concomitant]
  7. VERAPAMIL [Concomitant]
  8. VITAMIN D [Concomitant]

REACTIONS (1)
  - DRUG INEFFECTIVE [None]
